FAERS Safety Report 25667932 (Version 1)
Quarter: 2025Q3

REPORT INFORMATION
  Report Type: Spontaneous
  Country: US (occurrence: US)
  Receive Date: 20250812
  Receipt Date: 20250812
  Transmission Date: 20251020
  Serious: No
  Sender: AUROBINDO
  Company Number: US-AUROBINDO-AUR-APL-2025-031598

PATIENT

DRUGS (1)
  1. TESTOSTERONE [Suspect]
     Active Substance: TESTOSTERONE
     Indication: Product used for unknown indication
     Route: 065

REACTIONS (7)
  - Libido decreased [Unknown]
  - Irritability [Unknown]
  - Apathy [Unknown]
  - Fatigue [Unknown]
  - Insomnia [Unknown]
  - Drug ineffective [Unknown]
  - Product deposit [Unknown]
